FAERS Safety Report 6989135-7 (Version None)
Quarter: 2010Q3

REPORT INFORMATION
  Report Type: 
  Country: None (occurrence: None)
  Receive Date: 20100916
  Receipt Date: 20091007
  Transmission Date: 20110219
  Serious: Yes (Hospitalization)
  Sender: FDA-Public Use
  Company Number: FR-PFIZER INC-2009279328

PATIENT
  Sex: Female

DRUGS (8)
  1. LYRICA [Suspect]
     Dosage: 75 MG, 1X/DAY
     Route: 048
     Dates: start: 20090909, end: 20090914
  2. AMITRIPTYLINE HCL [Suspect]
     Dosage: 20 DROPS, 1X/DAY
     Route: 048
     Dates: start: 20090909, end: 20090914
  3. ACETAMINOPHEN W/ PROPOXYPHENE HCL [Concomitant]
     Dosage: UNK
     Route: 048
     Dates: end: 20090914
  4. STILNOX [Concomitant]
     Dosage: UNK
     Route: 048
     Dates: end: 20090914
  5. VASTAREL [Concomitant]
     Dosage: UNK
     Route: 048
     Dates: end: 20090914
  6. HYZAAR [Concomitant]
  7. TANGANIL [Concomitant]
  8. TANAKAN [Concomitant]

REACTIONS (2)
  - BALANCE DISORDER [None]
  - FALL [None]
